FAERS Safety Report 6520798-6 (Version None)
Quarter: 2009Q4

REPORT INFORMATION
  Report Type: 
  Country: None (occurrence: None)
  Receive Date: 20091229
  Receipt Date: 20091223
  Transmission Date: 20100525
  Serious: Yes (Hospitalization)
  Sender: FDA-Public Use
  Company Number: US-AMGEN-US372367

PATIENT
  Sex: Female
  Weight: 69.4 kg

DRUGS (18)
  1. NPLATE [Suspect]
     Indication: IDIOPATHIC THROMBOCYTOPENIC PURPURA
     Dates: start: 20090804, end: 20090924
  2. NPLATE [Suspect]
     Dates: start: 20090804, end: 20090804
  3. NPLATE [Suspect]
     Dates: start: 20090813, end: 20090813
  4. NPLATE [Suspect]
     Dates: start: 20090820, end: 20090917
  5. NPLATE [Suspect]
     Dates: start: 20090924, end: 20090924
  6. IMURAN [Concomitant]
     Dates: start: 20080516
  7. PREDNISONE [Concomitant]
     Dates: start: 20080701
  8. SYNTHROID [Concomitant]
     Dates: start: 20050601
  9. CYMBALTA [Concomitant]
     Dates: start: 20060701
  10. FLEXERIL [Concomitant]
     Dates: start: 20050601
  11. NORCO [Concomitant]
     Dates: start: 20080401
  12. LYRICA [Concomitant]
     Dates: start: 20090601
  13. CELLCEPT [Concomitant]
     Dates: start: 20090909
  14. EFFEXOR [Concomitant]
     Dates: start: 20050601
  15. KLONOPIN [Concomitant]
     Dates: start: 20050601
  16. PRILOSEC [Concomitant]
     Dates: start: 20090601
  17. CALCITONIN [Concomitant]
     Dates: start: 20090702
  18. RED BLOOD CELLS [Concomitant]
     Dates: start: 20070115

REACTIONS (2)
  - ACUTE MYELOID LEUKAEMIA [None]
  - HAEMOGLOBIN DECREASED [None]
